FAERS Safety Report 6093952-8 (Version None)
Quarter: 2009Q1

REPORT INFORMATION
  Report Type: 
  Country: None (occurrence: None)
  Receive Date: 20090226
  Receipt Date: 20090220
  Transmission Date: 20090719
  Serious: Yes (Death, Hospitalization)
  Sender: FDA-Public Use
  Company Number: A0770314A

PATIENT
  Age: 62 Year
  Sex: Male
  Weight: 109.1 kg

DRUGS (8)
  1. AVANDIA [Suspect]
     Indication: DIABETES MELLITUS
     Dosage: 8MG PER DAY
     Route: 048
     Dates: start: 20061001, end: 20070107
  2. GLUCOPHAGE [Concomitant]
  3. GLUCOTROL [Concomitant]
  4. CORGARD [Concomitant]
  5. METOPROLOL [Concomitant]
  6. LASIX [Concomitant]
  7. PRAVASTATIN [Concomitant]
  8. NITROSTAT [Concomitant]
     Dates: start: 20020101, end: 20070105

REACTIONS (1)
  - MYOCARDIAL INFARCTION [None]
